FAERS Safety Report 24158419 (Version 1)
Quarter: 2024Q3

REPORT INFORMATION
  Report Type: Report from Study
  Country: US (occurrence: US)
  Receive Date: 20240731
  Receipt Date: 20240731
  Transmission Date: 20241016
  Serious: No
  Sender: AURINIA PHARMACEUTICALS
  Company Number: US-AURINIA PHARMACEUTICALS INC.-AUR-005623

PATIENT
  Sex: Male

DRUGS (1)
  1. LUPKYNIS [Suspect]
     Active Substance: VOCLOSPORIN
     Indication: Cholera
     Dosage: 7.9 MILLIGRAM, BID
     Route: 048
     Dates: start: 20231223

REACTIONS (2)
  - Off label use [Unknown]
  - Product dose omission issue [Unknown]
